FAERS Safety Report 23291392 (Version 1)
Quarter: 2023Q4

REPORT INFORMATION
  Report Type: Spontaneous
  Country: NL (occurrence: NL)
  Receive Date: 20231213
  Receipt Date: 20231213
  Transmission Date: 20240109
  Serious: Yes (Hospitalization, Other)
  Sender: FDA-Public Use
  Company Number: NL-SANDOZ-SDZ2023NL066050

PATIENT
  Age: 71 Year
  Sex: Female

DRUGS (1)
  1. ACLASTA [Suspect]
     Active Substance: ZOLEDRONIC ACID
     Indication: Osteoporosis
     Dosage: 5 MG (1.0 X PER 52 WEEKS)
     Route: 042

REACTIONS (8)
  - Loss of consciousness [Unknown]
  - Skull fracture [Unknown]
  - Internal haemorrhage [Unknown]
  - Brain contusion [Unknown]
  - Fall [Unknown]
  - Hyperresponsive to stimuli [Unknown]
  - Gait disturbance [Unknown]
  - Dizziness [Unknown]

NARRATIVE: CASE EVENT DATE: 20231016
